FAERS Safety Report 13037062 (Version 1)
Quarter: 2016Q4

REPORT INFORMATION
  Report Type: Other
  Country: CA (occurrence: CA)
  Receive Date: 20161216
  Receipt Date: 20161216
  Transmission Date: 20170207
  Serious: Yes (Other)
  Sender: FDA-Public Use
  Company Number: CA-APOTEX-2016AP015548

PATIENT
  Sex: Female

DRUGS (1)
  1. APO-CLONAZEPAM [Suspect]
     Active Substance: CLONAZEPAM
     Indication: SEIZURE
     Dosage: UNK
     Route: 065

REACTIONS (3)
  - Coeliac disease [Unknown]
  - Insomnia [Unknown]
  - Malaise [Unknown]
